FAERS Safety Report 5637659-7 (Version None)
Quarter: 2008Q1

REPORT INFORMATION
  Report Type: 
  Country: None (occurrence: None)
  Receive Date: 20080219
  Receipt Date: 20080204
  Transmission Date: 20080703
  Serious: Yes (Death)
  Sender: FDA-Public Use
  Company Number: 2008-01257

PATIENT
  Age: 82 Year
  Sex: Male

DRUGS (9)
  1. CARVEDILOL [Suspect]
  2. POTASSIUM CHLORIDE [Suspect]
  3. FUROSEMIDE [Suspect]
  4. FLUOXETINE [Suspect]
  5. CARDIAC GLYCOSIDES() [Suspect]
  6. FERROUS SULFATE TAB [Suspect]
  7. AMIODARONE HCL [Suspect]
  8. RAMIPRIL [Suspect]
  9. WARFARIN SODIUM [Suspect]

REACTIONS (1)
  - DEATH [None]
